FAERS Safety Report 5262371-6 (Version None)
Quarter: 2007Q1

REPORT INFORMATION
  Report Type: 
  Country: None (occurrence: None)
  Receive Date: 20070308
  Receipt Date: 20070223
  Transmission Date: 20070707
  Serious: Yes (Other)
  Sender: FDA-Public Use
  Company Number: 15740

PATIENT
  Age: 32 Year
  Sex: Male

DRUGS (6)
  1. BLEOMYCIN [Suspect]
     Indication: TESTIS CANCER
     Dates: start: 19970401, end: 19980301
  2. CISPLATIN [Suspect]
     Indication: TESTIS CANCER
     Dosage: 20 MG/M2 PER_CYCLE
     Dates: start: 19970401, end: 19980301
  3. ETOPOSIDE [Suspect]
     Indication: TESTIS CANCER
     Dates: start: 19970401, end: 19980301
  4. ETOPOSIDE [Suspect]
     Indication: TESTIS CANCER
  5. CARBOPLATIN [Suspect]
     Indication: SEMINOMA
     Dosage: 1250 MG/M2 PER_CYCLE
     Dates: start: 19970401, end: 19980301
  6. IFOSFAMIDE [Suspect]
     Indication: SEMINOMA
     Dosage: 7.5 G/M PER_CYCLE
     Dates: start: 19970401, end: 19980301

REACTIONS (3)
  - AZOOSPERMIA [None]
  - BLOOD FOLLICLE STIMULATING HORMONE INCREASED [None]
  - BLOOD LUTEINISING HORMONE INCREASED [None]
